FAERS Safety Report 11236919 (Version 4)
Quarter: 2019Q1

REPORT INFORMATION
  Report Type: Spontaneous
  Country: US (occurrence: US)
  Receive Date: 20150703
  Receipt Date: 20190220
  Transmission Date: 20190417
  Serious: Yes (Hospitalization, Other)
  Sender: FDA-Public Use
  Company Number: US-DSJP-DSU-2015-120471

PATIENT
  Age: 42 Year
  Sex: Female
  Weight: 63 kg

DRUGS (5)
  1. PREMPRO [Concomitant]
     Active Substance: ESTROGENS, CONJUGATED\MEDROXYPROGESTERONE ACETATE
     Indication: PRODUCT USED FOR UNKNOWN INDICATION
     Dosage: 625 MG, QD
     Dates: start: 2005
  2. BENICAR HCT [Suspect]
     Active Substance: HYDROCHLOROTHIAZIDE\OLMESARTAN MEDOXOMIL
     Indication: PRODUCT USED FOR UNKNOWN INDICATION
     Dosage: 40-12.5 MG, QD
     Dates: start: 20030101
  3. BENICAR [Suspect]
     Active Substance: OLMESARTAN MEDOXOMIL
     Indication: HYPERTENSION
     Dosage: 40 MG, QD
     Route: 048
     Dates: start: 20030101
  4. BENICAR [Suspect]
     Active Substance: OLMESARTAN MEDOXOMIL
     Dosage: 20 MG, QD
     Dates: start: 20030101
  5. BENICAR [Suspect]
     Active Substance: OLMESARTAN MEDOXOMIL
     Dosage: 40 MG, QD
     Route: 048
     Dates: start: 2005, end: 2014

REACTIONS (5)
  - Acute kidney injury [Unknown]
  - Irritable bowel syndrome [Unknown]
  - Helicobacter gastritis [Unknown]
  - Gastrooesophageal reflux disease [Not Recovered/Not Resolved]
  - Sprue-like enteropathy [Recovered/Resolved]

NARRATIVE: CASE EVENT DATE: 20040403
